FAERS Safety Report 7649528-1 (Version None)
Quarter: 2011Q3

REPORT INFORMATION
  Report Type: 
  Country: None (occurrence: None)
  Receive Date: 20110802
  Receipt Date: 20110722
  Transmission Date: 20111222
  Serious: Yes (Hospitalization)
  Sender: FDA-Public Use
  Company Number: JP-NAPPMUNDI-MAG-2011-0001527

PATIENT
  Sex: Male

DRUGS (12)
  1. ACETAMINOPHEN [Concomitant]
     Indication: HEPATIC NEOPLASM MALIGNANT
     Dosage: UNK
  2. RABEPRAZOLE SODIUM [Concomitant]
     Dosage: 10 MG, DAILY
     Route: 048
     Dates: start: 20110211
  3. DIOVAN [Concomitant]
     Dosage: 40 MG, DAILY
     Route: 048
     Dates: start: 20100902
  4. OXYCODONE HCL [Suspect]
     Indication: CANCER PAIN
     Dosage: 5 MG, DAILY
     Route: 048
     Dates: start: 20110603, end: 20110606
  5. PROCHLORPERAZINE [Concomitant]
     Indication: CANCER PAIN
     Dosage: 5 MG, TID
     Route: 048
     Dates: start: 20110603, end: 20110606
  6. METHYCOBAL [Concomitant]
     Dosage: 1500 MCG, DAILY
     Route: 048
     Dates: start: 20090304
  7. PURSENNID                          /00571902/ [Concomitant]
     Indication: HEPATIC NEOPLASM MALIGNANT
     Dosage: UNK
     Dates: start: 20110603, end: 20110606
  8. ALLOID G [Concomitant]
     Dosage: 20 ML, DAILY
     Route: 048
     Dates: start: 20110531
  9. URSO                               /00465701/ [Concomitant]
     Dosage: 300 MG, DAILY
     Route: 048
     Dates: start: 20090219
  10. SODIUM PICOSULFATE [Concomitant]
     Dosage: 5 MG, DAILY
     Route: 048
     Dates: start: 20090319
  11. OXYCODONE HCL [Suspect]
     Indication: CANCER PAIN
     Dosage: 5 MG, BID
     Route: 048
     Dates: start: 20110603, end: 20110606
  12. MUCOSTA [Concomitant]
     Dosage: 300 MG, DAILY
     Route: 048
     Dates: start: 20100817

REACTIONS (1)
  - RENAL IMPAIRMENT [None]
